FAERS Safety Report 23570358 (Version 2)
Quarter: 2024Q4

REPORT INFORMATION
  Report Type: Spontaneous
  Country: FR (occurrence: FR)
  Receive Date: 20240227
  Receipt Date: 20241102
  Transmission Date: 20250115
  Serious: Yes (Hospitalization)
  Sender: TEVA
  Company Number: None

PATIENT
  Age: 24 Year
  Sex: Male

DRUGS (5)
  1. VENLAFAXINE [Suspect]
     Active Substance: VENLAFAXINE HYDROCHLORIDE
     Indication: Product used for unknown indication
     Dosage: VENLAFAXINE HYDROCHLORIDE, 3X75MG/DAY, MISUSE
     Route: 048
     Dates: start: 2022
  2. LORMETAZEPAM [Suspect]
     Active Substance: LORMETAZEPAM
     Indication: Product used for unknown indication
     Dosage: SCORED TABLET, MISUSE, TAKE 4 TABS INSTEAD OF 1 PER DAY
     Route: 048
     Dates: start: 2022
  3. COCAINE [Suspect]
     Active Substance: COCAINE
     Indication: Product used for unknown indication
     Dosage: 1 TO 2 TIMES A WEEK
     Route: 045
     Dates: start: 2018
  4. OXAZEPAM [Suspect]
     Active Substance: OXAZEPAM
     Indication: Product used for unknown indication
     Dosage: OXAZEPAM AYERST, SCORED TABLET, MISUSE, TAKE 3 TABS A DAY INSTEAD OF 1 TAB
     Route: 048
     Dates: start: 2022
  5. TRIMEPRAZINE [Suspect]
     Active Substance: TRIMEPRAZINE
     Indication: Product used for unknown indication
     Dosage: MISUSE, 200 DROPS PER DAY INSTEAD OF 50 DROPS
     Route: 048
     Dates: start: 2022

REACTIONS (1)
  - Drug dependence [Recovering/Resolving]
